FAERS Safety Report 10064711 (Version 1)
Quarter: 2014Q2

REPORT INFORMATION
  Report Type: Spontaneous
  Country: AU (occurrence: AU)
  Receive Date: 20140408
  Receipt Date: 20140408
  Transmission Date: 20141212
  Serious: Yes (Hospitalization)
  Sender: FDA-Public Use
  Company Number: AU-009507513-1404AUS003448

PATIENT
  Sex: Female

DRUGS (1)
  1. CELESTONE [Suspect]
     Dosage: UNK
     Dates: start: 201204

REACTIONS (1)
  - Hypersensitivity [Unknown]
